FAERS Safety Report 15459105 (Version 1)
Quarter: 2018Q4

REPORT INFORMATION
  Report Type: Spontaneous
  Country: US (occurrence: US)
  Receive Date: 20181003
  Receipt Date: 20181003
  Transmission Date: 20190204
  Serious: No
  Sender: FDA-Public Use
  Company Number: PHEH2018US040831

PATIENT
  Sex: Female
  Weight: 62.14 kg

DRUGS (3)
  1. DEXTROSE. [Concomitant]
     Active Substance: DEXTROSE
  2. ZOFRAN [Suspect]
     Active Substance: ONDANSETRON HYDROCHLORIDE
     Indication: NAUSEA
     Route: 041
  3. AZITHROMYCIN ANHYDROUS. [Suspect]
     Active Substance: AZITHROMYCIN ANHYDROUS
     Indication: GASTROENTERITIS STAPHYLOCOCCAL
     Dosage: 500 MG, QD
     Route: 041

REACTIONS (8)
  - Flatulence [Not Recovered/Not Resolved]
  - Body temperature increased [Recovered/Resolved]
  - Retching [Recovering/Resolving]
  - Malaise [Unknown]
  - Sinusitis [Recovered/Resolved]
  - Gastrointestinal disorder [Not Recovered/Not Resolved]
  - Weight decreased [Unknown]
  - Ear infection [Recovered/Resolved]

NARRATIVE: CASE EVENT DATE: 20171206
